FAERS Safety Report 4632295-3 (Version None)
Quarter: 2005Q2

REPORT INFORMATION
  Report Type: 
  Country: None (occurrence: None)
  Receive Date: 20050411
  Receipt Date: 20050323
  Transmission Date: 20051028
  Serious: Yes (Other)
  Sender: FDA-Public Use
  Company Number: JP-ROCHE-400857

PATIENT
  Age: 74 Year
  Sex: Male

DRUGS (6)
  1. TAMIFLU [Suspect]
     Route: 048
     Dates: start: 20050314, end: 20050315
  2. CLARITHROMYCIN [Concomitant]
     Route: 048
     Dates: start: 20050314
  3. GASMOTIN [Concomitant]
     Route: 048
     Dates: start: 20050216
  4. PURSENNID [Concomitant]
     Route: 048
     Dates: start: 20050216
  5. ITRIZOLE [Concomitant]
     Route: 048
     Dates: start: 20050303
  6. ENSURE LIQUID [Concomitant]
     Route: 048
     Dates: start: 20050216

REACTIONS (4)
  - COMMUNICATION DISORDER [None]
  - DEPRESSED LEVEL OF CONSCIOUSNESS [None]
  - HAEMORRHAGE [None]
  - HEAD INJURY [None]
